FAERS Safety Report 14817735 (Version 3)
Quarter: 2018Q2

REPORT INFORMATION
  Report Type: Spontaneous
  Country: US (occurrence: US)
  Receive Date: 20180427
  Receipt Date: 20180522
  Transmission Date: 20180711
  Serious: Yes (Other)
  Sender: FDA-Public Use
  Company Number: US-TEVA-2018-US-885447

PATIENT
  Age: 51 Year
  Sex: Female
  Weight: 47.67 kg

DRUGS (1)
  1. TRAZODONE [Suspect]
     Active Substance: TRAZODONE HYDROCHLORIDE
     Indication: INSOMNIA
     Route: 065

REACTIONS (10)
  - Diarrhoea [Unknown]
  - Drug effect incomplete [Unknown]
  - Swelling [Unknown]
  - Hypersensitivity [Unknown]
  - Dyspnoea [Unknown]
  - Throat tightness [Unknown]
  - Faeces soft [Unknown]
  - Alopecia [Unknown]
  - Pain [Unknown]
  - Insomnia [Unknown]

NARRATIVE: CASE EVENT DATE: 20180412
